FAERS Safety Report 12645505 (Version 1)
Quarter: 2016Q3

REPORT INFORMATION
  Report Type: Spontaneous
  Country: FR (occurrence: FR)
  Receive Date: 20160811
  Receipt Date: 20160811
  Transmission Date: 20161109
  Serious: Yes (Hospitalization)
  Sender: FDA-Public Use
  Company Number: FR-PFIZER INC-2016373458

PATIENT
  Age: 45 Year
  Sex: Male

DRUGS (5)
  1. BRISTOPEN [Suspect]
     Active Substance: OXACILLIN SODIUM
     Indication: SKIN BACTERIAL INFECTION
     Dosage: 2 G, 4X/DAY
     Route: 042
     Dates: start: 20151209, end: 20151216
  2. PIPERACILLINE / TAZOBACTAM MYLAN [Suspect]
     Active Substance: PIPERACILLIN SODIUM\TAZOBACTAM SODIUM
     Indication: SKIN BACTERIAL INFECTION
     Dosage: 4 G, 3X/DAY
     Route: 042
     Dates: start: 20151207, end: 20151209
  3. ZYVOXID [Suspect]
     Active Substance: LINEZOLID
     Indication: SKIN BACTERIAL INFECTION
     Dosage: 600 MG, 2X/DAY
     Route: 048
     Dates: start: 20151207, end: 20151209
  4. DALACINE [Suspect]
     Active Substance: CLINDAMYCIN HYDROCHLORIDE
     Indication: SKIN BACTERIAL INFECTION
     Dosage: 300 MG, 3X/DAY
     Route: 048
     Dates: start: 20151209, end: 20151217
  5. AUGMENTIN [Concomitant]
     Active Substance: AMOXICILLIN\CLAVULANATE POTASSIUM
     Indication: SKIN BACTERIAL INFECTION
     Dosage: UNK
     Route: 048
     Dates: start: 20151205, end: 20151207

REACTIONS (3)
  - Rash maculo-papular [Recovered/Resolved]
  - Administration site oedema [Recovered/Resolved]
  - Pruritus [Recovered/Resolved]

NARRATIVE: CASE EVENT DATE: 20151216
